FAERS Safety Report 9482402 (Version 1)
Quarter: 2013Q3

REPORT INFORMATION
  Report Type: Spontaneous
  Country: US (occurrence: US)
  Receive Date: 20130828
  Receipt Date: 20130828
  Transmission Date: 20140515
  Serious: Yes (Other)
  Sender: FDA-Public Use
  Company Number: US-PFIZER INC-2013248429

PATIENT
  Sex: Female

DRUGS (1)
  1. XANAX [Suspect]
     Indication: INITIAL INSOMNIA
     Dosage: 0.25 MG, UNK

REACTIONS (8)
  - Off label use [Unknown]
  - Loss of consciousness [Unknown]
  - Pain in extremity [Unknown]
  - Vascular pain [Unknown]
  - Nausea [Unknown]
  - Hyperhidrosis [Unknown]
  - Heart rate increased [Unknown]
  - Insomnia [Unknown]
